FAERS Safety Report 12116586 (Version 1)
Quarter: 2016Q1

REPORT INFORMATION
  Report Type: Spontaneous
  Country: US (occurrence: US)
  Receive Date: 20160225
  Receipt Date: 20160225
  Transmission Date: 20160526
  Serious: No
  Sender: FDA-Public Use
  Company Number: US-BIOGEN-2016BI00191469

PATIENT
  Sex: Female

DRUGS (1)
  1. TYSABRI [Suspect]
     Active Substance: NATALIZUMAB
     Indication: MULTIPLE SCLEROSIS
     Route: 042
     Dates: start: 20151116

REACTIONS (6)
  - Drug ineffective [Unknown]
  - Fatigue [Unknown]
  - Hypoaesthesia [Unknown]
  - General symptom [Unknown]
  - Head discomfort [Unknown]
  - Cognitive disorder [Unknown]
